FAERS Safety Report 6815193-6 (Version None)
Quarter: 2010Q2

REPORT INFORMATION
  Report Type: 
  Country: None (occurrence: None)
  Receive Date: 20100630
  Receipt Date: 20100630
  Transmission Date: 20101027
  Serious: No
  Sender: FDA-Public Use
  Company Number: None

PATIENT
  Age: 37 Year
  Sex: Female
  Weight: 63.5036 kg

DRUGS (1)
  1. PAROXETINE HCL [Suspect]
     Indication: ANXIETY
     Dosage: 1 PILL 1 PER DAY PO
     Route: 048

REACTIONS (9)
  - ABDOMINAL PAIN UPPER [None]
  - DIARRHOEA [None]
  - FEELING ABNORMAL [None]
  - HEAD DISCOMFORT [None]
  - HEADACHE [None]
  - MALAISE [None]
  - PAIN [None]
  - POOR QUALITY SLEEP [None]
  - PRODUCT SUBSTITUTION ISSUE [None]
